FAERS Safety Report 4313497-2 (Version None)
Quarter: 2004Q1

REPORT INFORMATION
  Report Type: 
  Country: None (occurrence: None)
  Receive Date: 20040308
  Receipt Date: 20040226
  Transmission Date: 20041129
  Serious: Yes (Other)
  Sender: FDA-Public Use
  Company Number: US-ROCHE-360239

PATIENT
  Age: 41 Year
  Sex: Male
  Weight: 74.4 kg

DRUGS (2)
  1. PEGASYS [Suspect]
     Route: 058
     Dates: start: 20031030, end: 20040106
  2. COPEGUS [Suspect]
     Route: 048
     Dates: start: 20031030, end: 20040106

REACTIONS (6)
  - AMMONIA INCREASED [None]
  - BLOOD ALKALINE PHOSPHATASE INCREASED [None]
  - CEREBRAL ATROPHY [None]
  - ENCEPHALOPATHY [None]
  - HAEMOGLOBIN DECREASED [None]
  - RED BLOOD CELL COUNT DECREASED [None]
